FAERS Safety Report 16947928 (Version 2)
Quarter: 2019Q4

REPORT INFORMATION
  Report Type: Spontaneous
  Country: PT (occurrence: PT)
  Receive Date: 20191022
  Receipt Date: 20191217
  Transmission Date: 20200122
  Serious: Yes (Disabling)
  Sender: FDA-Public Use
  Company Number: PT-BEH-2019108127

PATIENT
  Age: 51 Year
  Sex: Female

DRUGS (1)
  1. PRIVIGEN [Suspect]
     Active Substance: HUMAN IMMUNOGLOBULIN G
     Indication: MULTIPLE SCLEROSIS
     Dosage: 15 GRAM, QMT
     Route: 042
     Dates: start: 2019

REACTIONS (7)
  - Myalgia [Unknown]
  - Product substitution issue [Unknown]
  - Hypoaesthesia [Unknown]
  - Product use in unapproved indication [Unknown]
  - Headache [Unknown]
  - No adverse event [Unknown]
  - Gastric disorder [Unknown]
